FAERS Safety Report 10947493 (Version 1)
Quarter: 2015Q1

REPORT INFORMATION
  Report Type: Report from Study
  Country: MX (occurrence: MX)
  Receive Date: 20150323
  Receipt Date: 20150323
  Transmission Date: 20150721
  Serious: Yes (Hospitalization)
  Sender: FDA-Public Use
  Company Number: MX-BIOMARINAP-MX-2015-105848

PATIENT
  Age: 31 Year
  Sex: Female

DRUGS (1)
  1. ALDURAZYME [Suspect]
     Active Substance: LARONIDASE
     Indication: MUCOPOLYSACCHARIDOSIS I
     Dosage: UNK, QW
     Route: 041
     Dates: start: 2009

REACTIONS (1)
  - Catheter management [Unknown]

NARRATIVE: CASE EVENT DATE: 20150310
